FAERS Safety Report 13394187 (Version 1)
Quarter: 2017Q1

REPORT INFORMATION
  Report Type: Spontaneous
  Country: US (occurrence: US)
  Receive Date: 20170331
  Receipt Date: 20170331
  Transmission Date: 20170429
  Serious: Yes (Other)
  Sender: FDA-Public Use
  Company Number: None

PATIENT
  Sex: Female

DRUGS (1)
  1. PARICALCITOL 1MCG UNKNOWN [Suspect]
     Active Substance: PARICALCITOL
     Indication: RENAL DISORDER
     Dosage: 1MCG MON, WED, FRIDAY BY MOUTH
     Route: 048
     Dates: start: 20160416

REACTIONS (1)
  - Cerebrovascular accident [None]
